FAERS Safety Report 16539585 (Version 2)
Quarter: 2019Q3

REPORT INFORMATION
  Report Type: Spontaneous
  Country: BR (occurrence: BR)
  Receive Date: 20190708
  Receipt Date: 20190917
  Transmission Date: 20191004
  Serious: Yes (Hospitalization, Other)
  Sender: FDA-Public Use
  Company Number: BR-BRISTOL-MYERS SQUIBB COMPANY-BMS-2019-064348

PATIENT
  Age: 67 Year
  Sex: Male
  Weight: 101 kg

DRUGS (7)
  1. FORFIG [Concomitant]
     Indication: PRODUCT USED FOR UNKNOWN INDICATION
     Route: 065
  2. NIVOLUMAB [Suspect]
     Active Substance: NIVOLUMAB
     Indication: PRODUCT USED FOR UNKNOWN INDICATION
     Dosage: 3 MILLIGRAM/KILOGRAM, Q2WK
     Route: 042
  3. GLIFAGE [Concomitant]
     Active Substance: METFORMIN HYDROCHLORIDE
     Indication: PRODUCT USED FOR UNKNOWN INDICATION
     Route: 065
  4. NIVOLUMAB [Suspect]
     Active Substance: NIVOLUMAB
     Indication: METASTATIC MALIGNANT MELANOMA
     Dosage: 1 MILLIGRAM/KILOGRAM, Q3WK, (4 DOSES)
     Route: 042
  5. NIVOLUMAB [Suspect]
     Active Substance: NIVOLUMAB
     Indication: PRODUCT USED FOR UNKNOWN INDICATION
     Dosage: 480 MILLIGRAM, QMO
     Route: 042
  6. IPILIMUMAB [Suspect]
     Active Substance: IPILIMUMAB
     Indication: METASTATIC MALIGNANT MELANOMA
     Dosage: 3 MILLIGRAM/KILOGRAM, Q3WK (4 DOSES)
     Route: 042
  7. XIGDUO XR [Concomitant]
     Active Substance: DAPAGLIFLOZIN PROPANEDIOL\METFORMIN HYDROCHLORIDE
     Indication: PRODUCT USED FOR UNKNOWN INDICATION
     Route: 065

REACTIONS (20)
  - Thyroiditis [Unknown]
  - Hypomagnesaemia [Unknown]
  - Urticaria [Unknown]
  - Polyuria [Unknown]
  - Rash maculo-papular [Unknown]
  - Apathy [Unknown]
  - Lethargy [Unknown]
  - Blood glucose abnormal [Unknown]
  - Glucocorticoid deficiency [Unknown]
  - Hemianopia [Unknown]
  - Weight decreased [Unknown]
  - Hypogonadism [Unknown]
  - Dyslipidaemia [Unknown]
  - Hypothyroidism [Unknown]
  - Depressed mood [Unknown]
  - Hyperkalaemia [Unknown]
  - Proteinuria [Unknown]
  - Decreased appetite [Unknown]
  - Eastern Cooperative Oncology Group performance status worsened [Unknown]
  - Hepatitis [Unknown]
